FAERS Safety Report 9962832 (Version 1)
Quarter: 2014Q1

REPORT INFORMATION
  Report Type: Report from Study
  Country: US (occurrence: US)
  Receive Date: 20140305
  Receipt Date: 20140305
  Transmission Date: 20141002
  Serious: No
  Sender: FDA-Public Use
  Company Number: US-ABBVIE-13P-163-1112127-00

PATIENT
  Age: 29 Year
  Sex: Male

DRUGS (5)
  1. HUMIRA [Suspect]
     Indication: CROHN^S DISEASE
     Route: 058
     Dates: start: 20130506, end: 20130506
  2. HUMIRA [Suspect]
     Route: 058
     Dates: start: 20130513, end: 20130513
  3. HUMIRA [Suspect]
     Route: 058
     Dates: start: 20130616, end: 20130616
  4. VITAMIN B-12 [Concomitant]
     Indication: ASTHENIA
  5. PREDNISONE [Concomitant]
     Indication: CROHN^S DISEASE

REACTIONS (1)
  - Herpes zoster [Recovered/Resolved]
